FAERS Safety Report 12169050 (Version 1)
Quarter: 2016Q1

REPORT INFORMATION
  Report Type: Spontaneous
  Country: GB (occurrence: GB)
  Receive Date: 20160310
  Receipt Date: 20160310
  Transmission Date: 20160526
  Serious: Yes (Other)
  Sender: FDA-Public Use
  Company Number: GB-WATSON-2016-04422

PATIENT
  Age: 42 Year
  Sex: Female
  Weight: 62.13 kg

DRUGS (2)
  1. PREDNISOLONE (UNKNOWN) [Suspect]
     Active Substance: PREDNISOLONE
     Indication: AUTOINFLAMMATORY DISEASE
     Dosage: 20MG FOR 5 DAYS, THEN REDUCE BY 5MG EVERY 4 DAYS
     Route: 048
     Dates: start: 20160204
  2. OMEPRAZOLE. [Concomitant]
     Active Substance: OMEPRAZOLE
     Indication: PRODUCT USED FOR UNKNOWN INDICATION
     Dosage: UNK
     Route: 065

REACTIONS (5)
  - Insomnia [Not Recovered/Not Resolved]
  - Increased appetite [Not Recovered/Not Resolved]
  - Dizziness [Recovered/Resolved]
  - Tremor [Not Recovered/Not Resolved]
  - Mania [Recovering/Resolving]

NARRATIVE: CASE EVENT DATE: 20160204
